FAERS Safety Report 17500921 (Version 2)
Quarter: 2020Q1

REPORT INFORMATION
  Report Type: Spontaneous
  Country: DK (occurrence: DK)
  Receive Date: 20200305
  Receipt Date: 20200317
  Transmission Date: 20200409
  Serious: Yes (Disabling)
  Sender: FDA-Public Use
  Company Number: DK-ASTRAZENECA-2020SE29318

PATIENT
  Age: 71 Year
  Sex: Male

DRUGS (1)
  1. IMFINZI [Suspect]
     Active Substance: DURVALUMAB
     Indication: NON-SMALL CELL LUNG CANCER
     Dosage: DOSE: 764 MG TWO FIRST SERIES, 724 MG LAST, STRENGTH: 50 MG/ML
     Route: 042
     Dates: start: 20191105, end: 202001

REACTIONS (4)
  - Hepatitis [Unknown]
  - Pneumonitis [Recovering/Resolving]
  - Gait disturbance [Unknown]
  - Dyspnoea [Recovering/Resolving]

NARRATIVE: CASE EVENT DATE: 202001
